FAERS Safety Report 4636832-4 (Version None)
Quarter: 2005Q2

REPORT INFORMATION
  Report Type: 
  Country: None (occurrence: None)
  Receive Date: 20050414
  Receipt Date: 20050329
  Transmission Date: 20051028
  Serious: Yes (Other)
  Sender: FDA-Public Use
  Company Number: 230008M05BEL

PATIENT
  Age: 30 Year
  Sex: Male
  Weight: 87 kg

DRUGS (5)
  1. REBIF [Suspect]
     Indication: MULTIPLE SCLEROSIS
     Dosage: 44 MCG, 3 IN 1 WEEKS, SUBCUTANEOUS
     Route: 058
     Dates: start: 20030801
  2. PANTOPRAZOLE SODIUM [Concomitant]
  3. SELENIUM TRACE METAL ADDITIVE [Concomitant]
  4. CALCIUM D3 ^STADA^ [Concomitant]
  5. ESCITALOPRAM [Concomitant]

REACTIONS (4)
  - ANTI-HBS ANTIBODY POSITIVE [None]
  - HEPATIC CIRRHOSIS [None]
  - HEPATITIS A ANTIBODY POSITIVE [None]
  - SERUM FERRITIN INCREASED [None]
